FAERS Safety Report 21559053 (Version 3)
Quarter: 2023Q1

REPORT INFORMATION
  Report Type: Spontaneous
  Country: US (occurrence: US)
  Receive Date: 20221107
  Receipt Date: 20230105
  Transmission Date: 20230418
  Serious: No
  Sender: FDA-Public Use
  Company Number: US-JNJFOC-20221111203

PATIENT
  Age: 71 Year
  Sex: Male

DRUGS (10)
  1. ERLEADA [Suspect]
     Active Substance: APALUTAMIDE
     Indication: Product used for unknown indication
     Dosage: 60MG 4 TABLETS AT BEDTIME
     Route: 048
     Dates: start: 20221016
  2. ERLEADA [Suspect]
     Active Substance: APALUTAMIDE
     Dosage: DROPPING FROM 4 TO 3 TABLETS FOR 2 WEEKS
     Route: 048
  3. CARVEDILOL [Concomitant]
     Active Substance: CARVEDILOL
     Dosage: 6.25
     Route: 065
  4. ATORVASTATIN [Concomitant]
     Active Substance: ATORVASTATIN
     Route: 065
  5. HYDROCHLOROTHIAZIDE [Concomitant]
     Active Substance: HYDROCHLOROTHIAZIDE
     Dosage: 25
  6. AMLODIPINE [Concomitant]
     Active Substance: AMLODIPINE BESYLATE
     Route: 065
  7. TAMSULOSIN [Concomitant]
     Active Substance: TAMSULOSIN
     Route: 065
  8. OMEPRAZOLE [Concomitant]
     Active Substance: OMEPRAZOLE
     Route: 065
  9. BACLOFEN [Concomitant]
     Active Substance: BACLOFEN
     Route: 065
  10. CENTRUM SILVER [ASCORBIC ACID;CALCIUM;MINERALS NOS;RETINOL;TOCOPHERYL [Concomitant]
     Route: 065

REACTIONS (5)
  - Feeling drunk [Unknown]
  - Adverse event [Unknown]
  - Abnormal dreams [Unknown]
  - Behaviour disorder [Unknown]
  - Distractibility [Unknown]

NARRATIVE: CASE EVENT DATE: 20221001
